FAERS Safety Report 23735052 (Version 1)
Quarter: 2024Q2

REPORT INFORMATION
  Report Type: Spontaneous
  Country: CN (occurrence: CN)
  Receive Date: 20240412
  Receipt Date: 20240412
  Transmission Date: 20240716
  Serious: Yes (Other)
  Sender: FDA-Public Use
  Company Number: CN-BAUSCHBL-2024BNL025422

PATIENT
  Age: 55 Year
  Sex: Male

DRUGS (3)
  1. VISUDYNE [Suspect]
     Active Substance: VERTEPORFIN
     Indication: Corneal neovascularisation
     Dosage: OVER 10 MIN, AT A DOSE OF 6 MG/M2 OF THE BODY SURFACE AREA AND DILUTED WITH 5 % DEXTROSE T
     Route: 042
  2. AVASTIN [Suspect]
     Active Substance: BEVACIZUMAB
     Indication: Corneal neovascularisation
     Dosage: WAS SUB-CONJUNCTIVALLY INJECTED AT THE SITE ADJACENT TO THE ENTRANCE OF THE CORNEAL NEOVASCU
     Route: 057
  3. TOBRADEX [Suspect]
     Active Substance: DEXAMETHASONE\TOBRAMYCIN
     Indication: Corneal neovascularisation
     Dosage: 4 TIMES A DAY FOR 2 WEEKS
     Route: 065

REACTIONS (3)
  - Corneal epithelium defect [Unknown]
  - Corneal defect [Recovered/Resolved]
  - Off label use [Unknown]
